FAERS Safety Report 8585756-9 (Version None)
Quarter: 2012Q3

REPORT INFORMATION
  Report Type: 
  Country: None (occurrence: None)
  Receive Date: 20120810
  Receipt Date: 20120809
  Transmission Date: 20120928
  Serious: Yes (Other)
  Sender: FDA-Public Use
  Company Number: IT-BAYER-2012-081085

PATIENT
  Age: 74 Year
  Sex: Female

DRUGS (5)
  1. CLASTEON [Concomitant]
     Dosage: 200 MG, UNK
     Route: 030
  2. LEVOTHYROXINE SODIUM [Concomitant]
     Dosage: 125 ?G, UNK
     Route: 048
  3. NEXIUM [Concomitant]
     Dosage: 20 MG, UNK
     Route: 048
  4. CIPROFLOXACIN [Suspect]
     Indication: PYELONEPHRITIS ACUTE
     Dosage: 1000 MG, UNK
     Route: 048
     Dates: start: 20120802, end: 20120804
  5. DIBASE [Concomitant]
     Dosage: 10000 U/ML, UNK
     Route: 048

REACTIONS (3)
  - HYPERHIDROSIS [None]
  - SYNCOPE [None]
  - AUTONOMIC NEUROPATHY [None]
